FAERS Safety Report 9903759 (Version 2)
Quarter: 2014Q1

REPORT INFORMATION
  Report Type: Spontaneous
  Country: US (occurrence: US)
  Receive Date: 20140218
  Receipt Date: 20140220
  Transmission Date: 20141002
  Serious: No
  Sender: FDA-Public Use
  Company Number: US-009507513-1402USA006188

PATIENT
  Sex: Female

DRUGS (1)
  1. NEXPLANON [Suspect]
     Indication: CONTRACEPTION
     Dosage: DOSE/FREQUENCY: AS DIRECTED
     Route: 059
     Dates: start: 20131219, end: 20140204

REACTIONS (4)
  - Unintended pregnancy [Unknown]
  - Fungal infection [Unknown]
  - Feeling abnormal [Unknown]
  - Vulvovaginal pruritus [Unknown]
